FAERS Safety Report 5917491-7 (Version None)
Quarter: 2008Q4

REPORT INFORMATION
  Report Type: 
  Country: None (occurrence: None)
  Receive Date: 20081010
  Receipt Date: 20081010
  Transmission Date: 20090506
  Serious: Yes (Other)
  Sender: FDA-Public Use
  Company Number: None

PATIENT
  Sex: Female
  Weight: 70.3075 kg

DRUGS (1)
  1. AMRIX [Suspect]
     Indication: NECK PAIN
     Dosage: 1 PILL DAILY PO
     Route: 048
     Dates: start: 20080905, end: 20080905

REACTIONS (5)
  - ANGER [None]
  - DEPRESSION [None]
  - FEELING ABNORMAL [None]
  - HOSTILITY [None]
  - MOOD ALTERED [None]
